FAERS Safety Report 5683968-5 (Version None)
Quarter: 2008Q1

REPORT INFORMATION
  Report Type: 
  Country: None (occurrence: None)
  Receive Date: 20080328
  Receipt Date: 20080320
  Transmission Date: 20080703
  Serious: Yes (Hospitalization)
  Sender: FDA-Public Use
  Company Number: PHRM2008FR00963

PATIENT
  Age: 37 Year
  Sex: Female

DRUGS (13)
  1. SYNTOCINON [Suspect]
     Dosage: 5 IU AT 15ML/HR THEN 30ML/HR FROM 10:40 ON
     Dates: start: 20080224
  2. SYNTOCINON [Suspect]
     Dosage: 20 IU, ONCE/SINGLE
     Dates: start: 20080224, end: 20080224
  3. SYNTOCINON [Suspect]
     Dosage: 10 IU, ONCE/SINGLE
     Dates: start: 20080224
  4. SYNTOCINON [Suspect]
     Dosage: 5 IU, ONCE/SINGLE
     Route: 042
     Dates: start: 20080224, end: 20080224
  5. SYNTOCINON [Suspect]
     Dosage: 20 IU, ONCE/SINGLE
     Dates: start: 20080224
  6. SYNTOCINON [Suspect]
     Dosage: 5 IU, ONCE/SINGLE
     Dates: start: 20080224
  7. PROPESS [Concomitant]
     Indication: INDUCED LABOUR
     Dosage: 1 DF, ONCE/SINGLE
     Route: 067
     Dates: start: 20080223, end: 20080223
  8. ATARAX [Concomitant]
     Dosage: 1 DF, ONCE/SINGLE
     Route: 048
     Dates: start: 20080223, end: 20080223
  9. XYLOCAINE [Concomitant]
     Indication: LOCAL ANAESTHESIA
     Dosage: 1 DF, ONCE/SINGLE
     Route: 008
     Dates: start: 20080224, end: 20080224
  10. NAROPEINE [Concomitant]
     Indication: LOCAL ANAESTHESIA
     Dosage: 1 DF, ONCE/SINGLE
     Route: 008
     Dates: start: 20080224, end: 20080224
  11. SUFENTA [Concomitant]
     Indication: LOCAL ANAESTHESIA
     Dosage: 1 DF, ONCE/SINGLE
     Route: 008
     Dates: start: 20080224, end: 20080224
  12. SPASFON [Concomitant]
     Dosage: 80 MG, ONCE/SINGLE
     Route: 042
     Dates: start: 20080224, end: 20080224
  13. MAG 2 [Concomitant]
     Dosage: 1 DF, ONCE/SINGLE
     Route: 042
     Dates: start: 20080224, end: 20080224

REACTIONS (8)
  - BLOOD PRESSURE DECREASED [None]
  - DRUG INEFFECTIVE [None]
  - HAEMOGLOBIN DECREASED [None]
  - MASSAGE [None]
  - METRORRHAGIA [None]
  - POSTPARTUM HAEMORRHAGE [None]
  - UTERINE ATONY [None]
  - UTERINE DILATION AND EVACUATION [None]
